FAERS Safety Report 4362422-7 (Version None)
Quarter: 2004Q2

REPORT INFORMATION
  Report Type: 
  Country: None (occurrence: None)
  Receive Date: 20040521
  Receipt Date: 20040511
  Transmission Date: 20050107
  Serious: Yes (Hospitalization)
  Sender: FDA-Public Use
  Company Number: ES-BRISTOL-MYERS SQUIBB COMPANY-12584082

PATIENT
  Age: 80 Year
  Sex: Male

DRUGS (19)
  1. BLINDED: IRBESARTAN TABS [Suspect]
     Indication: CARDIAC FAILURE
     Dosage: STUDY DRUG STOPPED ON 11-MAY-2004
     Route: 048
     Dates: start: 20030618, end: 20040511
  2. BLINDED: PLACEBO [Suspect]
     Indication: CARDIAC FAILURE
     Route: 048
     Dates: start: 20030618, end: 20040511
  3. BOI K [Suspect]
     Dates: end: 20040511
  4. TEOFILINA [Suspect]
     Dates: end: 20040511
  5. ENALAPRIL MALEATE [Suspect]
     Dates: end: 20040511
  6. ACENOCOUMAROL [Suspect]
     Dates: end: 20040511
  7. ALLOPURINOL [Suspect]
     Dates: end: 20040511
  8. OMEPRAZOLE [Suspect]
     Dates: end: 20040511
  9. AMOXICILLIN AND CLAVULANATE POTASSIUM [Suspect]
     Dates: end: 20040511
  10. CLARITHROMYCIN [Suspect]
     Dates: end: 20040511
  11. LEVOFLOXACIN [Suspect]
     Dates: end: 20040511
  12. SERETIDE [Concomitant]
     Dosage: 25/250 2 INHALATIONS/12 HOURS
     Route: 055
  13. ATROVENT [Concomitant]
     Route: 055
  14. SINGULAIR [Concomitant]
  15. ACETYLCYSTEINE [Concomitant]
     Dosage: ORAL FORTE
     Route: 048
  16. PREDNISONE [Concomitant]
     Dosage: PREDNISONA ALONGA
  17. FUROSEMIDE [Concomitant]
  18. AMIODARONE HCL [Concomitant]
  19. CITALOPRAM [Concomitant]
     Dosage: 1/2 X 24 HRS

REACTIONS (1)
  - HEPATITIS TOXIC [None]
